FAERS Safety Report 17839995 (Version 1)
Quarter: 2020Q2

REPORT INFORMATION
  Report Type: Spontaneous
  Country: US (occurrence: US)
  Receive Date: 20200529
  Receipt Date: 20200529
  Transmission Date: 20200714
  Serious: Yes (Other)
  Sender: FDA-Public Use
  Company Number: None

PATIENT
  Age: 62 Year
  Sex: Male
  Weight: 89 kg

DRUGS (8)
  1. LAMOTRIGINE. [Suspect]
     Active Substance: LAMOTRIGINE
     Indication: SEIZURE
     Route: 048
     Dates: start: 20170504, end: 20200422
  2. OMNIPAQUE [Suspect]
     Active Substance: IOHEXOL
     Indication: SCAN WITH CONTRAST
     Dosage: ?          OTHER FREQUENCY:ONCE;?
     Route: 042
     Dates: start: 20200415, end: 20200415
  3. POLYETHYLENE GLYCOL [Concomitant]
     Active Substance: POLYETHYLENE GLYCOLS
  4. ESOMPERAZOLE [Concomitant]
     Active Substance: ESOMEPRAZOLE SODIUM
  5. VIMPAT [Concomitant]
     Active Substance: LACOSAMIDE
  6. PHENOBARBITAL. [Concomitant]
     Active Substance: PHENOBARBITAL
  7. LIRAGLUTIDE [Concomitant]
     Active Substance: LIRAGLUTIDE
  8. PALIPERIDONE. [Concomitant]
     Active Substance: PALIPERIDONE

REACTIONS (4)
  - Drug hypersensitivity [None]
  - Rash [None]
  - Rash maculo-papular [None]
  - Rash erythematous [None]

NARRATIVE: CASE EVENT DATE: 20200422
